FAERS Safety Report 19166322 (Version 1)
Quarter: 2021Q2

REPORT INFORMATION
  Report Type: Spontaneous
  Country: US (occurrence: US)
  Receive Date: 20210420
  Receipt Date: 20210420
  Transmission Date: 20210717
  Serious: Yes (Other)
  Sender: FDA-Public Use
  Company Number: None

PATIENT
  Age: 24 Year
  Sex: Male
  Weight: 40.9 kg

DRUGS (11)
  1. DIAZEPAM 5MG [Concomitant]
     Active Substance: DIAZEPAM
  2. MAGNESIUM OXIDE 400MG [Concomitant]
     Active Substance: MAGNESIUM OXIDE
  3. TESTOSTERONE 1.62% GEL [Concomitant]
     Active Substance: TESTOSTERONE
  4. MORPHINE ER 30MG [Concomitant]
     Active Substance: MORPHINE SULFATE
  5. CALCIUM CARBONATE 1250MG [Concomitant]
  6. POLYETHYLENE GLYCOL 3350. [Concomitant]
     Active Substance: POLYETHYLENE GLYCOL 3350
  7. BACTRIM 400?800MG [Concomitant]
  8. OXYCODONE 5MG [Concomitant]
     Active Substance: OXYCODONE
  9. ZOFRAN ODT 4MG [Concomitant]
  10. VOTRIENT [Suspect]
     Active Substance: PAZOPANIB HYDROCHLORIDE
     Indication: MALIGNANT CONNECTIVE TISSUE NEOPLASM
     Route: 048
     Dates: start: 20210209, end: 20210302
  11. POTASSIUM CITRATE ER 10 MEQ [Concomitant]

REACTIONS (6)
  - Nausea [None]
  - Myelosuppression [None]
  - Decreased appetite [None]
  - Vomiting [None]
  - Dehydration [None]
  - Drug intolerance [None]

NARRATIVE: CASE EVENT DATE: 20210331
